FAERS Safety Report 25104573 (Version 2)
Quarter: 2025Q1

REPORT INFORMATION
  Report Type: Spontaneous
  Country: TR (occurrence: TR)
  Receive Date: 20250321
  Receipt Date: 20250326
  Transmission Date: 20250409
  Serious: Yes (Other)
  Sender: PFIZER
  Company Number: TR-PFIZER INC-PV202500032863

PATIENT
  Age: 45 Year
  Sex: Female

DRUGS (1)
  1. AXITINIB [Suspect]
     Active Substance: AXITINIB
     Indication: Metastases to lung
     Dosage: 7 MG, 2X/DAY

REACTIONS (7)
  - Vision blurred [Recovering/Resolving]
  - Retinal haemorrhage [Recovering/Resolving]
  - Retinal exudates [Recovering/Resolving]
  - Macular oedema [Recovering/Resolving]
  - Subretinal fluid [Recovering/Resolving]
  - Retinal ischaemia [Recovering/Resolving]
  - Retinal pigmentation [Recovering/Resolving]
